FAERS Safety Report 8440379 (Version 3)
Quarter: 2013Q1

REPORT INFORMATION
  Report Type: Spontaneous
  Country: US (occurrence: US)
  Receive Date: 20120305
  Receipt Date: 20130227
  Transmission Date: 20140127
  Serious: Yes (Hospitalization, Other)
  Sender: FDA-Public Use
  Company Number: US-ELI_LILLY_AND_COMPANY-US201201004812

PATIENT
  Age: 63 None
  Sex: Female
  Weight: 74.83 kg

DRUGS (3)
  1. FORTEO [Suspect]
     Indication: OSTEOPOROSIS
     Dosage: 20 UG, QD
     Dates: start: 20120113
  2. FORTEO [Suspect]
     Dosage: 20 UG, QD
  3. FORTEO [Suspect]
     Dosage: 20 UG, QD
     Dates: end: 201301

REACTIONS (5)
  - Appendicitis perforated [Recovering/Resolving]
  - Incorrect storage of drug [Unknown]
  - Pain [Unknown]
  - Drug dose omission [Unknown]
  - Bronchitis [Unknown]
